FAERS Safety Report 17861895 (Version 1)
Quarter: 2020Q2

REPORT INFORMATION
  Report Type: Spontaneous
  Country: US (occurrence: US)
  Receive Date: 20200604
  Receipt Date: 20200604
  Transmission Date: 20200714
  Serious: No
  Sender: FDA-Public Use
  Company Number: US-009507513-2006USA001135

PATIENT
  Age: 67 Year
  Sex: Female

DRUGS (2)
  1. PRINIVIL [Suspect]
     Active Substance: LISINOPRIL
     Indication: HYPERTENSION
  2. PRINIVIL [Suspect]
     Active Substance: LISINOPRIL
     Indication: HERPES ZOSTER
     Dosage: 40 MILLIGRAM
     Route: 048
     Dates: start: 201611

REACTIONS (1)
  - Product use in unapproved indication [Unknown]

NARRATIVE: CASE EVENT DATE: 201611
